FAERS Safety Report 9258840 (Version 1)
Quarter: 2013Q2

REPORT INFORMATION
  Report Type: Spontaneous
  Country: CA (occurrence: CA)
  Receive Date: 20130426
  Receipt Date: 20130426
  Transmission Date: 20140414
  Serious: Yes (Other)
  Sender: FDA-Public Use
  Company Number: CA-GLAXOSMITHKLINE-A1020706A

PATIENT
  Age: 68 Year
  Sex: Female
  Weight: 59.1 kg

DRUGS (1)
  1. ADVAIR [Suspect]
     Indication: BRONCHITIS CHRONIC
     Dosage: 1PUFF TWICE PER DAY
     Route: 055
     Dates: start: 201208

REACTIONS (4)
  - Pulmonary congestion [Recovering/Resolving]
  - Sinusitis [Unknown]
  - Rhinorrhoea [Unknown]
  - Increased upper airway secretion [Unknown]
